FAERS Safety Report 24301479 (Version 1)
Quarter: 2024Q3

REPORT INFORMATION
  Report Type: Spontaneous
  Country: US (occurrence: US)
  Receive Date: 20240910
  Receipt Date: 20240910
  Transmission Date: 20241017
  Serious: Yes (Death, Other)
  Sender: DR REDDYS
  Company Number: US-DRL-USA-SPO/USA/24/0013066

PATIENT
  Age: 54 Year
  Sex: Female

DRUGS (5)
  1. DOCETAXEL [Suspect]
     Active Substance: DOCETAXEL\DOCETAXEL ANHYDROUS
     Indication: Squamous cell carcinoma
  2. CARBOPLATIN [Suspect]
     Active Substance: CARBOPLATIN
     Indication: Squamous cell carcinoma
  3. PEMBROLIZUMAB [Suspect]
     Active Substance: PEMBROLIZUMAB
     Indication: Squamous cell carcinoma
     Dosage: FOUR CYCLES
  4. PREDNISONE [Suspect]
     Active Substance: PREDNISONE
     Indication: Myositis
     Dosage: TAPER (MAX DOSE 40 MG)
  5. PREDNISONE [Suspect]
     Active Substance: PREDNISONE
     Indication: Arthritis

REACTIONS (2)
  - Malignant neoplasm progression [Fatal]
  - Drug ineffective [Fatal]
